FAERS Safety Report 17242717 (Version 1)
Quarter: 2020Q1

REPORT INFORMATION
  Report Type: Spontaneous
  Country: DE (occurrence: DE)
  Receive Date: 20200107
  Receipt Date: 20200107
  Transmission Date: 20200409
  Serious: Yes (Other)
  Sender: FDA-Public Use
  Company Number: DE-DRREDDYS-GER/GER/19/0117864

PATIENT
  Age: 1 Day
  Sex: Male
  Weight: 3.2 kg

DRUGS (1)
  1. QUETIAPINE. [Suspect]
     Active Substance: QUETIAPINE
     Indication: PRODUCT USED FOR UNKNOWN INDICATION
     Dosage: 25 [MG/D ]
     Route: 064
     Dates: start: 20180811, end: 20190519

REACTIONS (8)
  - Optic discs blurred [Recovering/Resolving]
  - Nasal congestion [Recovering/Resolving]
  - Foetal exposure during pregnancy [Unknown]
  - Acoustic stimulation tests abnormal [Unknown]
  - Agitation neonatal [Recovering/Resolving]
  - Hypertonia neonatal [Recovering/Resolving]
  - Sneezing [Recovering/Resolving]
  - Diarrhoea [Recovering/Resolving]

NARRATIVE: CASE EVENT DATE: 20190519
